FAERS Safety Report 12406692 (Version 1)
Quarter: 2016Q2

REPORT INFORMATION
  Report Type: Spontaneous
  Country: US (occurrence: US)
  Receive Date: 20160526
  Receipt Date: 20160526
  Transmission Date: 20160815
  Serious: Yes (Hospitalization, Other)
  Sender: FDA-Public Use
  Company Number: US-AMGEN-USASP2016065650

PATIENT
  Age: 69 Year
  Sex: Female
  Weight: 73.47 kg

DRUGS (1)
  1. ENBREL [Suspect]
     Active Substance: ETANERCEPT
     Indication: PSORIASIS
     Dosage: 50 MG, QWK
     Route: 058
     Dates: start: 2014, end: 20160519

REACTIONS (4)
  - Psoriasis [Not Recovered/Not Resolved]
  - Hospitalisation [Unknown]
  - Memory impairment [Unknown]
  - Treatment failure [Unknown]

NARRATIVE: CASE EVENT DATE: 2015
